FAERS Safety Report 19105906 (Version 2)
Quarter: 2021Q3

REPORT INFORMATION
  Report Type: Spontaneous
  Country: US (occurrence: US)
  Receive Date: 20210408
  Receipt Date: 20210708
  Transmission Date: 20211014
  Serious: Yes (Death, Hospitalization, Other)
  Sender: FDA-Public Use
  Company Number: US-HIKMA PHARMACEUTICALS USA INC.-US-H14001-21-01606

PATIENT
  Age: 73 Year
  Sex: Female
  Weight: 75.3 kg

DRUGS (4)
  1. FLUOROURACIL. [Suspect]
     Active Substance: FLUOROURACIL
     Indication: CHEMOTHERAPY
     Route: 042
     Dates: start: 20210201, end: 20210421
  2. LEUCOVORIN. [Suspect]
     Active Substance: LEUCOVORIN
     Indication: CHEMOTHERAPY
     Route: 042
     Dates: start: 20210127, end: 20210421
  3. NANOLIPOSOMAL IRINOTECAN [Suspect]
     Active Substance: IRINOTECAN
     Indication: CHEMOTHERAPY
     Route: 042
     Dates: start: 20210127, end: 20210421
  4. NIVOLUMAB [Suspect]
     Active Substance: NIVOLUMAB
     Indication: CHEMOTHERAPY
     Route: 042
     Dates: start: 20210201, end: 20210421

REACTIONS (11)
  - Pain [Unknown]
  - Pyrexia [Unknown]
  - Duodenal ulcer [Unknown]
  - Upper gastrointestinal haemorrhage [Not Recovered/Not Resolved]
  - Vomiting [Unknown]
  - Nausea [Unknown]
  - Hepatobiliary cancer [Fatal]
  - Sepsis [Unknown]
  - Delirium [Unknown]
  - Haematemesis [Unknown]
  - Pneumonia [Recovered/Resolved]

NARRATIVE: CASE EVENT DATE: 20210303
